FAERS Safety Report 10665433 (Version 1)
Quarter: 2014Q4

REPORT INFORMATION
  Report Type: Spontaneous
  Country: US (occurrence: US)
  Receive Date: 20141219
  Receipt Date: 20141219
  Transmission Date: 20150529
  Serious: Yes (Other)
  Sender: FDA-Public Use
  Company Number: US-TEVA-529172USA

PATIENT
  Age: 32 Year
  Sex: Female

DRUGS (1)
  1. CAPECITABINE. [Suspect]
     Active Substance: CAPECITABINE
     Dosage: 2000 MG QAM, 1500 MG QPM
     Route: 048
     Dates: start: 20140910

REACTIONS (8)
  - Palmar-plantar erythrodysaesthesia syndrome [Unknown]
  - Asthenia [Unknown]
  - Mental impairment [Unknown]
  - Dry skin [Unknown]
  - Paraesthesia [Unknown]
  - Erythema [Unknown]
  - Feeling abnormal [Unknown]
  - Brain oedema [Unknown]

NARRATIVE: CASE EVENT DATE: 201409
